FAERS Safety Report 4396764-6 (Version None)
Quarter: 2004Q3

REPORT INFORMATION
  Report Type: 
  Country: None (occurrence: None)
  Receive Date: 20040714
  Receipt Date: 20040709
  Transmission Date: 20050211
  Serious: Yes (Death)
  Sender: FDA-Public Use
  Company Number: 200412284JP

PATIENT
  Age: 36 Year
  Sex: Male

DRUGS (3)
  1. LASIX [Suspect]
     Route: 041
     Dates: start: 20040427, end: 20040506
  2. MODACIN [Suspect]
     Route: 041
  3. MEROPEN [Suspect]
     Route: 041

REACTIONS (1)
  - TOXIC EPIDERMAL NECROLYSIS [None]
